FAERS Safety Report 7794483-7 (Version None)
Quarter: 2011Q4

REPORT INFORMATION
  Report Type: 
  Country: None (occurrence: None)
  Receive Date: 20111004
  Receipt Date: 20110909
  Transmission Date: 20120403
  Serious: No
  Sender: FDA-Public Use
  Company Number: US-BAYER-2011-084256

PATIENT

DRUGS (1)
  1. ADALAT CC [Suspect]

REACTIONS (3)
  - CHEST PAIN [None]
  - DYSPNOEA [None]
  - BACK PAIN [None]
